FAERS Safety Report 12207068 (Version 1)
Quarter: 2016Q1

REPORT INFORMATION
  Report Type: Spontaneous
  Country: US (occurrence: None)
  Receive Date: 20160323
  Receipt Date: 20160323
  Transmission Date: 20160526
  Serious: Yes (Hospitalization)
  Sender: FDA-Public Use
  Company Number: None

PATIENT
  Age: 44 Year
  Sex: Male
  Weight: 113 kg

DRUGS (2)
  1. TIROFIBAN 5MG PER 100ML MEDICURE [Suspect]
     Active Substance: TIROFIBAN
     Indication: PERCUTANEOUS CORONARY INTERVENTION
     Dates: start: 20160105, end: 20160105
  2. HEPARIN [Concomitant]
     Active Substance: HEPARIN SODIUM

REACTIONS (2)
  - Thrombosis [None]
  - Condition aggravated [None]

NARRATIVE: CASE EVENT DATE: 20160105
